FAERS Safety Report 16882347 (Version 3)
Quarter: 2020Q1

REPORT INFORMATION
  Report Type: Spontaneous
  Country: DK (occurrence: DK)
  Receive Date: 20191003
  Receipt Date: 20200128
  Transmission Date: 20200409
  Serious: Yes (Other)
  Sender: FDA-Public Use
  Company Number: DK-ALLERGAN-1939656US

PATIENT
  Sex: Female
  Weight: 68 kg

DRUGS (2)
  1. SELINCRO [Suspect]
     Active Substance: NALMEFENE HYDROCHLORIDE DIHYDRATE
     Indication: ALCOHOL ABUSE
     Route: 048
  2. CITALOPRAM HYDROBROMIDE - BP [Suspect]
     Active Substance: CITALOPRAM HYDROBROMIDE
     Indication: DEPRESSION
     Dosage: UNK MG
     Route: 065

REACTIONS (2)
  - Ideas of reference [Recovered/Resolved]
  - Hallucination, auditory [Recovered/Resolved]
